FAERS Safety Report 8294226-7 (Version None)
Quarter: 2012Q2

REPORT INFORMATION
  Report Type: 
  Country: None (occurrence: None)
  Receive Date: 20120418
  Receipt Date: 20120416
  Transmission Date: 20120825
  Serious: Yes (Hospitalization)
  Sender: FDA-Public Use
  Company Number: PHHY2012ES031750

PATIENT
  Age: 82 Year
  Sex: Male

DRUGS (2)
  1. ZOMETA [Suspect]
     Dosage: 5 MG, EVERY 4 WEEKS
     Route: 042
     Dates: start: 20100405
  2. ZOMETA [Suspect]
     Indication: MULTIPLE MYELOMA
     Dosage: 5 MG, EVERY 4 WEEKS
     Route: 042
     Dates: start: 20080401, end: 20090401

REACTIONS (5)
  - OSTEONECROSIS OF JAW [None]
  - BONE FISTULA [None]
  - PAIN IN JAW [None]
  - PURULENT DISCHARGE [None]
  - PRIMARY SEQUESTRUM [None]
